FAERS Safety Report 20946953 (Version 1)
Quarter: 2022Q2

REPORT INFORMATION
  Report Type: Spontaneous
  Country: BR (occurrence: None)
  Receive Date: 20220610
  Receipt Date: 20220610
  Transmission Date: 20220720
  Serious: Yes (Other)
  Sender: FDA-Public Use
  Company Number: BR-ROCHE-3115916

PATIENT
  Sex: Female

DRUGS (1)
  1. RIVOTRIL [Suspect]
     Active Substance: CLONAZEPAM
     Indication: Insomnia
     Dosage: STARTED 5 YEARS AGO AND ONGOING
     Route: 048

REACTIONS (4)
  - Drug dependence [Unknown]
  - Off label use [Unknown]
  - Incorrect product administration duration [Unknown]
  - Product quality issue [Unknown]
